FAERS Safety Report 4412252-2 (Version None)
Quarter: 2004Q2

REPORT INFORMATION
  Report Type: 
  Country: None (occurrence: None)
  Receive Date: 20040630
  Receipt Date: 20040318
  Transmission Date: 20050107
  Serious: No
  Sender: FDA-Public Use
  Company Number: 04P-163-0253928-00

PATIENT
  Age: 37 Year
  Sex: Female

DRUGS (6)
  1. HUMIRA [Suspect]
     Indication: RHEUMATOID ARTHRITIS
     Dosage: 40 MG, 1 IN 2 WK, SUBCUTANEOUS
     Route: 058
     Dates: start: 20040216
  2. CELECOXIB [Concomitant]
  3. OXYCODONE HCL [Concomitant]
  4. FLEXIRIL [Concomitant]
  5. FOLIC ACID [Concomitant]
  6. METHOTREXATE SODIUM [Concomitant]

REACTIONS (2)
  - CHILLS [None]
  - PYREXIA [None]
